FAERS Safety Report 4583562-3 (Version None)
Quarter: 2005Q1

REPORT INFORMATION
  Report Type: 
  Country: None (occurrence: None)
  Receive Date: 20050211
  Receipt Date: 20050204
  Transmission Date: 20050727
  Serious: Yes (Hospitalization, Other)
  Sender: FDA-Public Use
  Company Number: 200510266GDS

PATIENT
  Age: 80 Year
  Sex: Male

DRUGS (3)
  1. ASPIRIN [Suspect]
     Indication: ACUTE MYOCARDIAL INFARCTION
     Dosage: 300 MG, TOTAL DAILY
  2. TENECTEPLASE [Suspect]
     Indication: ACUTE MYOCARDIAL INFARCTION
     Dosage: 37.5 MG, TOTAL DIALY
  3. HEPARIN [Suspect]
     Indication: ACUTE MYOCARDIAL INFARCTION

REACTIONS (11)
  - AGITATION [None]
  - CARDIAC ARREST [None]
  - CHEST PAIN [None]
  - CONFUSIONAL STATE [None]
  - DRUG INEFFECTIVE [None]
  - DYSPHAGIA [None]
  - ECG SIGNS OF MYOCARDIAL ISCHAEMIA [None]
  - HAEMATOMA [None]
  - HAEMOPTYSIS [None]
  - OESOPHAGEAL HAEMORRHAGE [None]
  - VENTRICULAR FIBRILLATION [None]
